FAERS Safety Report 9665313 (Version 2)
Quarter: 2013Q4

REPORT INFORMATION
  Report Type: Spontaneous
  Country: US (occurrence: US)
  Receive Date: 20131101
  Receipt Date: 20131210
  Transmission Date: 20140711
  Serious: No
  Sender: FDA-Public Use
  Company Number: US-009507513-1310USA014973

PATIENT
  Age: 79 Year
  Sex: Female
  Weight: 56.24 kg

DRUGS (2)
  1. OXYTROL FOR WOMEN [Suspect]
     Indication: MICTURITION URGENCY
     Dosage: UNK, UNKNOWN
     Route: 062
     Dates: start: 20130930, end: 20131030
  2. OXYBUTYNIN [Concomitant]
     Indication: INCONTINENCE
     Dosage: UNK, UNKNOWN

REACTIONS (3)
  - Pruritus generalised [Recovered/Resolved]
  - Overdose [Unknown]
  - Off label use [Unknown]
